FAERS Safety Report 23625862 (Version 8)
Quarter: 2025Q2

REPORT INFORMATION
  Report Type: Spontaneous
  Country: US (occurrence: US)
  Receive Date: 20240313
  Receipt Date: 20250521
  Transmission Date: 20250717
  Serious: Yes (Other)
  Sender: CSL BEHRING
  Company Number: US-BEH-2024169317

PATIENT
  Age: 74 Year
  Sex: Female

DRUGS (21)
  1. HIZENTRA [Suspect]
     Active Substance: HUMAN IMMUNOGLOBULIN G
     Indication: Polyarthritis
     Dosage: 14 GRAM, QOW
     Route: 058
     Dates: start: 20210117
  2. HIZENTRA [Suspect]
     Active Substance: HUMAN IMMUNOGLOBULIN G
     Dosage: 14 G, QOW
     Route: 058
  3. HIZENTRA [Suspect]
     Active Substance: HUMAN IMMUNOGLOBULIN G
     Dosage: 14 G, QOW
     Route: 058
     Dates: start: 20241004
  4. HIZENTRA [Suspect]
     Active Substance: HUMAN IMMUNOGLOBULIN G
     Dosage: 14 GRAM, QOW
     Route: 058
     Dates: start: 202101
  5. HIZENTRA [Suspect]
     Active Substance: HUMAN IMMUNOGLOBULIN G
     Dosage: 14 GRAM, QOW(EVERY 2 WEEKS)
     Route: 058
     Dates: start: 20250327
  6. HIZENTRA [Suspect]
     Active Substance: HUMAN IMMUNOGLOBULIN G
     Dosage: 14 G, QOW
     Route: 058
  7. OXYCODONE HYDROCHLORIDE [Concomitant]
     Active Substance: OXYCODONE HYDROCHLORIDE
  8. ASPIRIN [Concomitant]
     Active Substance: ASPIRIN
  9. BIOTIN [Concomitant]
     Active Substance: BIOTIN
  10. CALCIUM [Concomitant]
     Active Substance: CALCIUM
  11. CEPHALEXIN [Concomitant]
     Active Substance: CEPHALEXIN
  12. CLONAZEPAM [Concomitant]
     Active Substance: CLONAZEPAM
  13. LAMOTRIGINE [Concomitant]
     Active Substance: LAMOTRIGINE
  14. LAMOTRIGINE [Concomitant]
     Active Substance: LAMOTRIGINE
  15. METHENAMINE [Concomitant]
     Active Substance: METHENAMINE
  16. VITAMINS NOS [Concomitant]
     Active Substance: VITAMINS
  17. OMEPRAZOLE [Concomitant]
     Active Substance: OMEPRAZOLE
  18. PREDNISONE [Concomitant]
     Active Substance: PREDNISONE
  19. VITAMIN D3 [Concomitant]
     Active Substance: CHOLECALCIFEROL
  20. XANAX [Concomitant]
     Active Substance: ALPRAZOLAM
  21. AMOXICILLIN [Concomitant]
     Active Substance: AMOXICILLIN

REACTIONS (30)
  - Hip fracture [Unknown]
  - Off label use [Unknown]
  - Fall [Unknown]
  - Limb asymmetry [Unknown]
  - Balance disorder [Unknown]
  - Gait inability [Unknown]
  - Anxiety [Unknown]
  - Depressed mood [Unknown]
  - Somnolence [Recovered/Resolved]
  - Feeling cold [Recovered/Resolved]
  - Therapy interrupted [Unknown]
  - Feeling cold [Recovered/Resolved]
  - Incorrect drug administration rate [Recovered/Resolved]
  - Somnolence [Recovered/Resolved]
  - Incorrect drug administration rate [Recovered/Resolved]
  - Headache [Recovered/Resolved]
  - Incorrect drug administration rate [Recovered/Resolved]
  - Muscular weakness [Recovered/Resolved]
  - Restlessness [Unknown]
  - Dysuria [Unknown]
  - Insomnia [Unknown]
  - COVID-19 [Unknown]
  - Pain [Unknown]
  - Pruritus [Not Recovered/Not Resolved]
  - Nausea [Recovered/Resolved]
  - Pyrexia [Recovered/Resolved]
  - Headache [Recovered/Resolved]
  - Pain in extremity [Recovered/Resolved]
  - Nausea [Unknown]
  - Diarrhoea [Unknown]

NARRATIVE: CASE EVENT DATE: 20230901
